FAERS Safety Report 8748711 (Version 2)
Quarter: 2012Q4

REPORT INFORMATION
  Report Type: 
  Country: IT (occurrence: IT)
  Receive Date: 20120827
  Receipt Date: 20120924
  Transmission Date: 20130627
  Serious: Yes (Other)
  Sender: FDA-Public Use
  Company Number: IT-TEVA-354964ISR

PATIENT
  Age: 48 Year
  Sex: Female

DRUGS (7)
  1. OLANZAPINE [Suspect]
     Dosage: up to 10 mg/day
     Route: 065
     Dates: start: 2008
  2. CLOZAPINE [Suspect]
     Indication: INTENTIONAL OVERDOSE
     Dosage: 25 Milligram Daily;
     Route: 065
  3. CLOZAPINE [Suspect]
     Dosage: 100 Milligram Daily;
     Route: 065
  4. CLOZAPINE [Suspect]
     Dosage: overdose
     Route: 065
     Dates: start: 200811
  5. HALOPERIDOL [Suspect]
     Dosage: 2 Milligram Daily;
     Route: 030
     Dates: start: 200812
  6. CHLORPROMAZINE [Suspect]
     Dosage: 50 Milligram Daily;
     Route: 030
     Dates: start: 200812
  7. DOXAZOSIN [Concomitant]
     Indication: HYPERTENSION
     Route: 065

REACTIONS (2)
  - Neuroleptic malignant syndrome [Recovered/Resolved]
  - Catatonia [Recovered/Resolved]
